FAERS Safety Report 9508915 (Version 2)
Quarter: 2013Q3

REPORT INFORMATION
  Report Type: Spontaneous
  Country: US (occurrence: US)
  Receive Date: 20130909
  Receipt Date: 20130909
  Transmission Date: 20140515
  Serious: No
  Sender: FDA-Public Use
  Company Number: US-BRISTOL-MYERS SQUIBB COMPANY-18930263

PATIENT
  Sex: Male

DRUGS (2)
  1. ABILIFY TABS 5 MG [Suspect]
     Dosage: ONE AND A HALF TABLETS OF ABILIFY 5MG TABLETS PER DAY
  2. ABILIFY ORAL SOLUTION [Suspect]
     Dosage: AT NIGHT
     Route: 048

REACTIONS (2)
  - Off label use [Unknown]
  - Anger [Not Recovered/Not Resolved]
